FAERS Safety Report 18440119 (Version 3)
Quarter: 2021Q1

REPORT INFORMATION
  Report Type: Spontaneous
  Country: US (occurrence: US)
  Receive Date: 20201029
  Receipt Date: 20210303
  Transmission Date: 20210419
  Serious: No
  Sender: FDA-Public Use
  Company Number: US-LUPIN PHARMACEUTICALS INC.-2020-07804

PATIENT
  Sex: Female

DRUGS (1)
  1. SUPRAX [Suspect]
     Active Substance: CEFIXIME
     Indication: CYSTITIS
     Dosage: UNK
     Route: 048
     Dates: start: 20201015, end: 20201016

REACTIONS (4)
  - Wrong technique in product usage process [Unknown]
  - Diarrhoea [Unknown]
  - Malaise [Unknown]
  - Taste disorder [Unknown]
